FAERS Safety Report 7473330-7 (Version None)
Quarter: 2011Q2

REPORT INFORMATION
  Report Type: 
  Country: None (occurrence: None)
  Receive Date: 20110511
  Receipt Date: 20110502
  Transmission Date: 20111010
  Serious: Yes (Other)
  Sender: FDA-Public Use
  Company Number: CA-ABBOTT-11P-028-0722824-00

PATIENT
  Sex: Male
  Weight: 113 kg

DRUGS (7)
  1. HYDROCHLOROTHIAZIDE [Concomitant]
     Indication: HYPERTENSION
     Dates: start: 20080528
  2. RHOXAL-BISOPROLOL [Concomitant]
     Indication: HYPERTENSION
     Dates: start: 20080528
  3. HUMIRA [Suspect]
     Indication: PSORIASIS
     Route: 058
     Dates: start: 20090507, end: 20110203
  4. ASPIRIN [Concomitant]
     Indication: THROMBOSIS PROPHYLAXIS
     Dates: start: 20061221
  5. ACETAMINOPHEN [Concomitant]
     Indication: HEADACHE
     Dates: start: 19700101
  6. LIPITOR [Concomitant]
     Indication: HYPERLIPIDAEMIA
     Dates: start: 20020516
  7. NORVASC [Concomitant]
     Indication: HYPERTENSION
     Dates: start: 20070205

REACTIONS (1)
  - THYROID CANCER [None]
